FAERS Safety Report 7654975-8 (Version None)
Quarter: 2011Q3

REPORT INFORMATION
  Report Type: 
  Country: None (occurrence: None)
  Receive Date: 20110804
  Receipt Date: 20110726
  Transmission Date: 20111222
  Serious: Yes (Death, Hospitalization, Other)
  Sender: FDA-Public Use
  Company Number: DE-ELI_LILLY_AND_COMPANY-DE201107006829

PATIENT
  Age: 81 Year
  Sex: Male

DRUGS (2)
  1. CALCIUM ACETATE [Concomitant]
  2. FORTEO [Suspect]
     Indication: OSTEOPOROSIS
     Dosage: UNK, QD
     Route: 058
     Dates: start: 20100319, end: 20110401

REACTIONS (3)
  - RENAL FAILURE [None]
  - HOSPITALISATION [None]
  - POISONING [None]
